FAERS Safety Report 19437298 (Version 4)
Quarter: 2022Q3

REPORT INFORMATION
  Report Type: Spontaneous
  Country: JP (occurrence: JP)
  Receive Date: 20210619
  Receipt Date: 20220923
  Transmission Date: 20221027
  Serious: Yes (Hospitalization)
  Sender: FDA-Public Use
  Company Number: JP-ACTELION-A-CH2016-147529

PATIENT
  Age: 47 Year
  Sex: Male
  Weight: 86 kg

DRUGS (42)
  1. UPTRAVI [Suspect]
     Active Substance: SELEXIPAG
     Indication: Pulmonary arterial hypertension
     Dosage: 0.2 MG, BID
     Route: 048
     Dates: start: 20161208, end: 20161225
  2. UPTRAVI [Suspect]
     Active Substance: SELEXIPAG
     Dosage: 0.2 MG, QD
     Route: 048
     Dates: start: 20161226, end: 20170122
  3. UPTRAVI [Suspect]
     Active Substance: SELEXIPAG
     Dosage: 0.2 MG, BID
     Route: 048
     Dates: start: 20170123, end: 20170305
  4. UPTRAVI [Suspect]
     Active Substance: SELEXIPAG
     Dosage: 0.6 MG, QD
     Route: 048
     Dates: start: 20170306, end: 20170402
  5. UPTRAVI [Suspect]
     Active Substance: SELEXIPAG
     Dosage: 0.4 MG, BID
     Route: 048
     Dates: start: 20170403, end: 20170430
  6. UPTRAVI [Suspect]
     Active Substance: SELEXIPAG
     Dosage: 0.6 MG, BID
     Route: 048
     Dates: start: 20170501, end: 20170508
  7. UPTRAVI [Suspect]
     Active Substance: SELEXIPAG
     Dosage: 1 MG, QD
     Route: 048
     Dates: start: 20170509, end: 20170528
  8. UPTRAVI [Suspect]
     Active Substance: SELEXIPAG
     Dosage: 0.6 MG, BID
     Route: 048
     Dates: start: 20170529, end: 20170626
  9. UPTRAVI [Suspect]
     Active Substance: SELEXIPAG
     Dosage: 1.4 MG, QD
     Route: 048
     Dates: start: 20170627, end: 20170723
  10. UPTRAVI [Suspect]
     Active Substance: SELEXIPAG
     Dosage: 0.8 MG, BID
     Route: 048
     Dates: start: 20170724, end: 20171022
  11. UPTRAVI [Suspect]
     Active Substance: SELEXIPAG
     Dosage: 1.8 MG, QD
     Route: 048
     Dates: start: 20171023, end: 20180121
  12. UPTRAVI [Suspect]
     Active Substance: SELEXIPAG
     Dosage: 1.0 MG, BID
     Route: 048
     Dates: start: 20180122, end: 20180415
  13. UPTRAVI [Suspect]
     Active Substance: SELEXIPAG
     Dosage: 2.2 MG, QD (MORNING 1.2MG, EVENING 1.0MG)
     Route: 048
     Dates: start: 20180416, end: 20180902
  14. UPTRAVI [Suspect]
     Active Substance: SELEXIPAG
     Route: 048
     Dates: start: 20180903
  15. OPSUMIT [Concomitant]
     Active Substance: MACITENTAN
     Indication: Pulmonary arterial hypertension
     Dosage: 10 MG, QD
     Route: 048
     Dates: start: 20160613
  16. REVATIO [Concomitant]
     Active Substance: SILDENAFIL CITRATE
     Indication: Pulmonary arterial hypertension
     Dosage: 60 MG, QD
     Dates: start: 20100324, end: 20170529
  17. ADCIRCA [Concomitant]
     Active Substance: TADALAFIL
     Indication: Pulmonary arterial hypertension
     Dosage: 40 MG, QD
     Dates: start: 20170529
  18. LASIX [Concomitant]
     Active Substance: FUROSEMIDE
     Indication: Prophylaxis
     Dosage: 40 MG, QD
     Dates: start: 20051128
  19. EPLERENONE [Concomitant]
     Active Substance: EPLERENONE
     Dosage: 50 MG, QD
     Dates: end: 20170306
  20. CANDESARTAN CILEXETIL [Concomitant]
     Active Substance: CANDESARTAN CILEXETIL
     Dosage: 4 MG, QD
     Dates: start: 20060104, end: 20170306
  21. CARVEDILOL [Concomitant]
     Active Substance: CARVEDILOL
     Dosage: 2.5 MG, QD
     Dates: start: 20060522, end: 20170306
  22. RABEPRAZOLE SODIUM [Concomitant]
     Active Substance: RABEPRAZOLE SODIUM
     Indication: Gastric ulcer
     Dosage: 10 MG, QD
     Dates: start: 20080108
  23. LOXOPROFEN SODIUM [Concomitant]
     Active Substance: LOXOPROFEN SODIUM
     Indication: Headache
     Dosage: 60 MG, QD
     Dates: start: 20161219
  24. LOXOPROFEN SODIUM [Concomitant]
     Active Substance: LOXOPROFEN SODIUM
     Indication: Myalgia
     Dosage: 100 MG, QD
     Dates: start: 20161220
  25. REBAMIPIDE [Concomitant]
     Active Substance: REBAMIPIDE
     Indication: Prophylaxis
     Dosage: 100 MG, QD
     Dates: start: 20161219, end: 20170617
  26. OXETHAZAINE [Concomitant]
     Active Substance: OXETHAZAINE
     Indication: Nausea
     Dosage: 5 MG, QD
     Dates: start: 20161220
  27. OXETHAZAINE [Concomitant]
     Active Substance: OXETHAZAINE
     Indication: Gastric ulcer
  28. FEBUXOSTAT [Concomitant]
     Active Substance: FEBUXOSTAT
     Indication: Hyperuricaemia
     Dosage: 40 MG, QD
     Dates: start: 20161220
  29. BIO-THREE [Concomitant]
     Active Substance: HERBALS
     Indication: Diarrhoea
     Dosage: 3 DF, QD
     Dates: start: 20170220, end: 20170905
  30. MOMETASONE [Concomitant]
     Active Substance: MOMETASONE
     Indication: Rash
     Dosage: 40 MG, QD
     Dates: start: 20170411
  31. DIPHENHYDRAMINE [Concomitant]
     Active Substance: DIPHENHYDRAMINE
     Indication: Rash
     Dosage: 20 MG, QD
     Dates: start: 20170411
  32. NADIFLOXACIN [Concomitant]
     Active Substance: NADIFLOXACIN
     Indication: Rash
     Dosage: 20 MG, QD
     Dates: start: 20170411, end: 20180522
  33. CARBOCYSTEINE [Concomitant]
     Active Substance: CARBOCYSTEINE
     Indication: Nasopharyngitis
     Dosage: 100 MG, QD
     Dates: start: 20170606
  34. CEFDINIR [Concomitant]
     Active Substance: CEFDINIR
     Indication: Pneumonia
     Dosage: 300 MG, QD
     Dates: start: 20170606, end: 20170611
  35. HYDROXYZINE HYDROCHLORIDE [Concomitant]
     Active Substance: HYDROXYZINE HYDROCHLORIDE
     Indication: Rash
     Dosage: 25 MG, QD
     Dates: start: 20170627, end: 20170727
  36. DOMPERIDONE [Concomitant]
     Active Substance: DOMPERIDONE
     Indication: Nausea
     Dosage: 10 MG, QD
     Dates: start: 20171225, end: 20190107
  37. FELBINAC [Concomitant]
     Active Substance: FELBINAC
     Indication: Myalgia
     Dosage: 40 MG, QD
     Dates: start: 20180227, end: 20180521
  38. PROTOPIC [Concomitant]
     Active Substance: TACROLIMUS
     Indication: Prophylaxis
     Dosage: 25 G, QD
     Dates: start: 20180522
  39. PROTOPIC [Concomitant]
     Active Substance: TACROLIMUS
  40. HEPARINOID [Concomitant]
     Indication: Prophylaxis
     Dosage: 25 G, QD
     Dates: start: 20180522
  41. RINDERON V [Concomitant]
     Active Substance: BETAMETHASONE VALERATE
     Indication: Prophylaxis
     Dosage: 10 ML, QD
     Dates: start: 20180522
  42. FLURANDRENOLIDE [Concomitant]
     Active Substance: FLURANDRENOLIDE
     Indication: Prophylaxis
     Dates: start: 20180821

REACTIONS (13)
  - Pneumonia [Recovered/Resolved]
  - Headache [Recovering/Resolving]
  - Diarrhoea [Recovered/Resolved]
  - Pain in jaw [Recovered/Resolved]
  - Plantar fasciitis [Not Recovered/Not Resolved]
  - Nausea [Recovered/Resolved]
  - Rash [Recovered/Resolved]
  - Pain [Recovered/Resolved]
  - Stomatitis [Recovered/Resolved]
  - Pain in extremity [Recovered/Resolved]
  - Nasopharyngitis [Recovered/Resolved]
  - Back pain [Recovered/Resolved]
  - Herpes simplex [Recovered/Resolved]

NARRATIVE: CASE EVENT DATE: 20161210
